FAERS Safety Report 9619384 (Version 2)
Quarter: 2013Q4

REPORT INFORMATION
  Report Type: Spontaneous
  Country: US (occurrence: US)
  Receive Date: 20131014
  Receipt Date: 20131120
  Transmission Date: 20140711
  Serious: Yes (Other)
  Sender: FDA-Public Use
  Company Number: US-PFIZER INC-2013289549

PATIENT
  Sex: Male

DRUGS (2)
  1. TRIFLURIDINE [Suspect]
     Indication: OPHTHALMIC HERPES SIMPLEX
     Dosage: 1 DROP IN RIGHT EYE, 1X/DAY
     Route: 047
     Dates: start: 2012
  2. ACYCLOVIR [Concomitant]
     Dosage: UNK

REACTIONS (3)
  - Incorrect product storage [Unknown]
  - Poor quality drug administered [Unknown]
  - Drug effect decreased [Unknown]
